FAERS Safety Report 18207085 (Version 1)
Quarter: 2020Q3

REPORT INFORMATION
  Report Type: Spontaneous
  Country: US (occurrence: US)
  Receive Date: 20200828
  Receipt Date: 20200828
  Transmission Date: 20201103
  Serious: No
  Sender: FDA-Public Use
  Company Number: US-BAYER-2020-178609

PATIENT
  Sex: Female

DRUGS (8)
  1. FELDENE [Suspect]
     Active Substance: PIROXICAM
  2. ALEVE [Suspect]
     Active Substance: NAPROXEN SODIUM
  3. VIOXX [Suspect]
     Active Substance: ROFECOXIB
  4. ASPIRIN (PAIN AND FEVER) [Suspect]
     Active Substance: ASPIRIN
     Dosage: UNK
  5. PLAVIX [Suspect]
     Active Substance: CLOPIDOGREL BISULFATE
  6. VOLTAREN [DICLOFENAC] [Suspect]
     Active Substance: DICLOFENAC SODIUM
  7. CELEBREX [Suspect]
     Active Substance: CELECOXIB
  8. CLINORIL [Suspect]
     Active Substance: SULINDAC

REACTIONS (2)
  - Gastritis [Unknown]
  - Duodenitis [Unknown]
